FAERS Safety Report 8005903-7 (Version None)
Quarter: 2011Q4

REPORT INFORMATION
  Report Type: 
  Country: None (occurrence: None)
  Receive Date: 20111223
  Receipt Date: 20111219
  Transmission Date: 20120403
  Serious: No
  Sender: FDA-Public Use
  Company Number: US-ASTRAZENECA-2008UW28984

PATIENT
  Age: 49 Year
  Sex: Male

DRUGS (2)
  1. SEROQUEL [Suspect]
     Indication: SCHIZOAFFECTIVE DISORDER
     Route: 048
  2. SEROQUEL [Suspect]
     Route: 048

REACTIONS (7)
  - DRUG DOSE OMISSION [None]
  - AGITATION [None]
  - COMMUNICATION DISORDER [None]
  - DRUG INEFFECTIVE [None]
  - THYROID DISORDER [None]
  - DISORIENTATION [None]
  - FEELING ABNORMAL [None]
